FAERS Safety Report 16956509 (Version 1)
Quarter: 2019Q4

REPORT INFORMATION
  Report Type: Spontaneous
  Country: US (occurrence: US)
  Receive Date: 20191024
  Receipt Date: 20191024
  Transmission Date: 20200122
  Serious: No
  Sender: FDA-Public Use
  Company Number: US-KYOWAKIRIN-2019BKK016601

PATIENT

DRUGS (2)
  1. DOCETAXEL. [Suspect]
     Active Substance: DOCETAXEL
     Indication: CHEMOTHERAPY
     Dosage: UNKNOWN
     Route: 065
  2. SANCUSO [Suspect]
     Active Substance: GRANISETRON
     Indication: PRODUCT USED FOR UNKNOWN INDICATION
     Dosage: UNKNOWN
     Route: 065
     Dates: start: 20190807

REACTIONS (3)
  - Skin lesion [Unknown]
  - Erythema [Unknown]
  - Dry skin [Unknown]

NARRATIVE: CASE EVENT DATE: 20191016
